FAERS Safety Report 7527627-2 (Version None)
Quarter: 2011Q2

REPORT INFORMATION
  Report Type: 
  Country: None (occurrence: None)
  Receive Date: 20110607
  Receipt Date: 20110525
  Transmission Date: 20111010
  Serious: Yes (Other)
  Sender: FDA-Public Use
  Company Number: IT-JNJFOC-20110512363

PATIENT
  Age: 22 Year
  Sex: Female

DRUGS (2)
  1. TOPIRAMATE [Suspect]
     Indication: MYDRIASIS
     Route: 048
  2. TOPIRAMATE [Suspect]
     Route: 048

REACTIONS (5)
  - WEIGHT DECREASED [None]
  - BRADYPHRENIA [None]
  - ALOPECIA [None]
  - APHASIA [None]
  - ABNORMAL SENSATION IN EYE [None]
